FAERS Safety Report 6726500-7 (Version None)
Quarter: 2010Q2

REPORT INFORMATION
  Report Type: 
  Country: None (occurrence: None)
  Receive Date: 20100514
  Receipt Date: 20100506
  Transmission Date: 20101027
  Serious: Yes (Hospitalization)
  Sender: FDA-Public Use
  Company Number: PHHO2010IT06911

PATIENT
  Sex: Female
  Weight: 57 kg

DRUGS (1)
  1. AFINITOR [Suspect]
     Indication: METASTATIC RENAL CELL CARCINOMA
     Dosage: 10 MG, UNK
     Route: 048
     Dates: start: 20100322, end: 20100505

REACTIONS (3)
  - GLOSSITIS [None]
  - OROPHARYNGEAL SWELLING [None]
  - SPEECH DISORDER [None]
